FAERS Safety Report 6443570-4 (Version None)
Quarter: 2009Q4

REPORT INFORMATION
  Report Type: 
  Country: None (occurrence: None)
  Receive Date: 20091113
  Receipt Date: 20091103
  Transmission Date: 20100525
  Serious: Yes (Other)
  Sender: FDA-Public Use
  Company Number: 232617J09USA

PATIENT
  Age: 44 Year
  Sex: Female
  Weight: 90 kg

DRUGS (8)
  1. REBIF [Suspect]
     Indication: MULTIPLE SCLEROSIS
     Dosage: 44 MCG, 3 IN 1 WEEKS, SUBCUTANEOUS
     Route: 058
     Dates: start: 20090626
  2. NAPRELAN [Concomitant]
  3. CYMBALTA [Concomitant]
  4. TIZANIDINE HCL [Concomitant]
  5. TRIAMTERENE (TRIAMTERENE) [Concomitant]
  6. CADUET (CADUET) [Concomitant]
  7. NIASPAN [Concomitant]
  8. VITAMIN D [Concomitant]

REACTIONS (1)
  - DIABETES MELLITUS [None]
